FAERS Safety Report 20484124 (Version 1)
Quarter: 2022Q1

REPORT INFORMATION
  Report Type: Spontaneous
  Country: US (occurrence: None)
  Receive Date: 20220216
  Receipt Date: 20220216
  Transmission Date: 20220424
  Serious: Yes (Death, Life-Threatening)
  Sender: FDA-Public Use
  Company Number: None

PATIENT
  Age: 54 Year
  Sex: Male

DRUGS (1)
  1. SURE ANTI-PERSPIRANT AND DEODORANT UNSCENTED [Suspect]
     Active Substance: ALUMINUM CHLOROHYDRATE
     Dosage: FREQUENCY : TWICE A DAY;?

REACTIONS (1)
  - Plasma cell myeloma [None]
